FAERS Safety Report 5130704-7 (Version None)
Quarter: 2006Q4

REPORT INFORMATION
  Report Type: 
  Country: None (occurrence: None)
  Receive Date: 20061019
  Receipt Date: 20061003
  Transmission Date: 20070319
  Serious: Yes (Other)
  Sender: FDA-Public Use
  Company Number: US-ROCHE-465835

PATIENT
  Age: 49 Year
  Sex: Male

DRUGS (1)
  1. FUZEON [Suspect]
     Route: 058
     Dates: start: 20051214

REACTIONS (3)
  - DISCOMFORT [None]
  - HAEMATOMA [None]
  - INCORRECT ROUTE OF DRUG ADMINISTRATION [None]
